FAERS Safety Report 7605981-0 (Version None)
Quarter: 2011Q3

REPORT INFORMATION
  Report Type: 
  Country: None (occurrence: None)
  Receive Date: 20110713
  Receipt Date: 20110708
  Transmission Date: 20111222
  Serious: Yes (Death, Hospitalization, Other)
  Sender: FDA-Public Use
  Company Number: PHHY2010GB15752

PATIENT
  Sex: Male
  Weight: 120 kg

DRUGS (15)
  1. CLOZAPINE [Suspect]
     Dosage: 12.5 MG ONCE IN 3 DAYS
     Route: 048
  2. CLOZAPINE [Suspect]
     Dosage: 50 MG, TID
     Route: 048
     Dates: end: 20100512
  3. CLOZAPINE [Suspect]
     Dosage: UNK
     Route: 048
     Dates: end: 20110509
  4. CLOZAPINE [Suspect]
     Indication: SCHIZOPHRENIA
     Dosage: UNK
     Dates: start: 20050527, end: 20060301
  5. LORAZEPAM [Concomitant]
     Dosage: 4 MG/24 HOURS
     Route: 048
  6. CLOPIXOL DEPOT [Concomitant]
     Indication: PSYCHOTIC DISORDER
  7. CLOZAPINE [Suspect]
     Dosage: UNK
     Route: 048
     Dates: start: 20070801, end: 20071001
  8. CLOZAPINE [Suspect]
     Dosage: UNK
     Route: 048
     Dates: start: 20100401
  9. OMEPRAZOLE [Concomitant]
     Dosage: 20 MG, QD
     Route: 048
  10. CLOZAPINE [Suspect]
     Dosage: 12.5 MG ONCE IN 2 DAYS
     Route: 048
     Dates: start: 20100513
  11. PROCYCLIDINE HYDROCHLORIDE 2MG TAB [Concomitant]
     Dosage: 5 MG, QD
     Route: 048
  12. RISPERIDONE [Concomitant]
     Indication: PSYCHOTIC DISORDER
     Dosage: 20 MG, QD
  13. SIMVASTATIN [Concomitant]
     Dosage: 20 MG, QD
     Route: 048
  14. HALOPERIDOL [Concomitant]
     Dosage: 5-10 MG PRN (MAX 20 MG)
  15. CLOZAPINE [Suspect]
     Dosage: 225 MG (50+75+100 MG)/DAY
     Route: 048
     Dates: start: 20100101

REACTIONS (15)
  - MENTAL IMPAIRMENT [None]
  - OVERWEIGHT [None]
  - CARDIAC FAILURE [None]
  - SPEECH DISORDER [None]
  - HEART RATE INCREASED [None]
  - TROPONIN T INCREASED [None]
  - CIRCULATORY COLLAPSE [None]
  - AGGRESSION [None]
  - ANTIPSYCHOTIC DRUG LEVEL BELOW THERAPEUTIC [None]
  - TACHYCARDIA [None]
  - PSYCHOTIC DISORDER [None]
  - MYOCARDITIS [None]
  - EPILEPSY [None]
  - CHEST PAIN [None]
  - SOMNOLENCE [None]
